FAERS Safety Report 12612028 (Version 1)
Quarter: 2016Q3

REPORT INFORMATION
  Report Type: Spontaneous
  Country: TR (occurrence: TR)
  Receive Date: 20160801
  Receipt Date: 20160801
  Transmission Date: 20161109
  Serious: Yes (Hospitalization, Other)
  Sender: FDA-Public Use
  Company Number: TR-JNJFOC-20160522340

PATIENT
  Age: 65 Year

DRUGS (2)
  1. XARELTO [Suspect]
     Active Substance: RIVAROXABAN
     Indication: PRODUCT USED FOR UNKNOWN INDICATION
     Route: 048
  2. KEPPRA [Suspect]
     Active Substance: LEVETIRACETAM
     Indication: EPILEPSY
     Route: 065

REACTIONS (5)
  - Arteriovenous fistula [Recovered/Resolved with Sequelae]
  - Intracranial haematoma [Recovered/Resolved with Sequelae]
  - Radioembolisation [Recovered/Resolved with Sequelae]
  - Haemorrhage intracranial [Unknown]
  - Cardiovascular disorder [Recovered/Resolved with Sequelae]
